FAERS Safety Report 8479214-X (Version None)
Quarter: 2012Q2

REPORT INFORMATION
  Report Type: 
  Country: None (occurrence: None)
  Receive Date: 20120629
  Receipt Date: 20120620
  Transmission Date: 20120825
  Serious: Yes (Other)
  Sender: FDA-Public Use
  Company Number: JP-SP-2012-06117

PATIENT
  Sex: Male
  Weight: 49 kg

DRUGS (2)
  1. AMLOPINE [Concomitant]
     Indication: HYPERTENSION
     Dosage: TABLET
     Route: 048
  2. IMMUCYST [Suspect]
     Indication: BLADDER CANCER
     Route: 043
     Dates: start: 20120309, end: 20120413

REACTIONS (6)
  - PYREXIA [None]
  - PULMONARY TUBERCULOSIS [None]
  - HAEMATURIA [None]
  - LUNG NEOPLASM [None]
  - HEPATIC FUNCTION ABNORMAL [None]
  - COUGH [None]
